FAERS Safety Report 6433291-6 (Version None)
Quarter: 2009Q4

REPORT INFORMATION
  Report Type: 
  Country: None (occurrence: None)
  Receive Date: 20091109
  Receipt Date: 20091028
  Transmission Date: 20100525
  Serious: Yes (Hospitalization, Other)
  Sender: FDA-Public Use
  Company Number: US-PFIZER INC-2009290038

PATIENT
  Sex: Female

DRUGS (8)
  1. ZOLOFT [Suspect]
     Dosage: 50 MG, 1X/DAY
     Route: 048
     Dates: end: 20091002
  2. DRONEDARONE [Interacting]
     Indication: ATRIAL FIBRILLATION
     Dosage: 400 MG, 2X/DAY
     Route: 048
     Dates: start: 20090925, end: 20091002
  3. ALPRAZOLAM [Concomitant]
  4. MAGNESIUM SULFATE [Concomitant]
     Route: 042
  5. PHENAZOPYRIDINE HYDROCHLORIDE [Concomitant]
     Dosage: UNK, AS NEEDED
  6. ALBUTEROL [Concomitant]
  7. LEVOSALBUTAMOL [Concomitant]
  8. PARACETAMOL [Concomitant]
     Dosage: UNK, AS NEEDED

REACTIONS (3)
  - ATRIAL FIBRILLATION [None]
  - DRUG INTERACTION [None]
  - SEROTONIN SYNDROME [None]
